FAERS Safety Report 24304808 (Version 1)
Quarter: 2024Q3

REPORT INFORMATION
  Report Type: Spontaneous
  Country: US (occurrence: None)
  Receive Date: 20240910
  Receipt Date: 20240910
  Transmission Date: 20241016
  Serious: No
  Sender: UNICHEM
  Company Number: US-Unichem Pharmaceuticals (USA) Inc-UCM202406-000740

PATIENT
  Sex: Female

DRUGS (1)
  1. TRAMADOL HCL [Suspect]
     Active Substance: TRAMADOL HYDROCHLORIDE
     Indication: Product used for unknown indication
     Dosage: UNKNOWN

REACTIONS (1)
  - Drug ineffective [Unknown]
